FAERS Safety Report 16775991 (Version 2)
Quarter: 2019Q3

REPORT INFORMATION
  Report Type: Spontaneous
  Country: US (occurrence: US)
  Receive Date: 20190905
  Receipt Date: 20190910
  Transmission Date: 20191005
  Serious: No
  Sender: FDA-Public Use
  Company Number: US-PFIZER INC-2019031225

PATIENT
  Sex: Female
  Weight: 48.8 kg

DRUGS (2)
  1. LYRICA [Suspect]
     Active Substance: PREGABALIN
     Dosage: 100 MG, 4X/DAY [EVERY 6 HRS]
     Route: 048
     Dates: start: 2016
  2. LYRICA [Suspect]
     Active Substance: PREGABALIN
     Indication: FIBROMYALGIA
     Dosage: UNK (TAKING HALF THE AMOUNT OF PREGABALIN SHE WAS SUPPOSED TO)

REACTIONS (2)
  - Weight increased [Unknown]
  - Intentional product misuse [Unknown]
